FAERS Safety Report 20874264 (Version 1)
Quarter: 2022Q2

REPORT INFORMATION
  Report Type: Spontaneous
  Country: None (occurrence: CA)
  Receive Date: 20220525
  Receipt Date: 20220525
  Transmission Date: 20220721
  Serious: No
  Sender: FDA-Public Use
  Company Number: CA-Sunstar Americas Inc.-2129175

PATIENT
  Age: 67 Year
  Sex: Male
  Weight: 70 kg

DRUGS (1)
  1. PAROEX [Suspect]
     Active Substance: CHLORHEXIDINE GLUCONATE
     Indication: Product used for unknown indication
     Route: 048
     Dates: start: 20201005, end: 20201030

REACTIONS (2)
  - Gingival disorder [Unknown]
  - Gingival pain [Unknown]
